FAERS Safety Report 9230203 (Version 2)
Quarter: 2013Q2

REPORT INFORMATION
  Report Type: Spontaneous
  Country: DK (occurrence: DK)
  Receive Date: 20130415
  Receipt Date: 20130430
  Transmission Date: 20140414
  Serious: Yes (Other)
  Sender: FDA-Public Use
  Company Number: DK-JNJFOC-20130403154

PATIENT
  Age: 50 Year
  Sex: Male

DRUGS (1)
  1. REMICADE [Suspect]
     Indication: HIDRADENITIS
     Dosage: AT 0,2, 6 AND THEN ONCE EVERY 8 WEEKS
     Route: 042
     Dates: start: 20101028, end: 20110103

REACTIONS (2)
  - Renal neoplasm [Not Recovered/Not Resolved]
  - Off label use [Unknown]
